FAERS Safety Report 8462025-9 (Version None)
Quarter: 2012Q2

REPORT INFORMATION
  Report Type: 
  Country: None (occurrence: None)
  Receive Date: 20120625
  Receipt Date: 20120615
  Transmission Date: 20120825
  Serious: Yes (Hospitalization, Other)
  Sender: FDA-Public Use
  Company Number: ZA-JNJFOC-20120516723

PATIENT
  Sex: Male
  Weight: 69 kg

DRUGS (5)
  1. PREXUM [Concomitant]
     Indication: HYPERTENSION
     Dosage: STARTED 3 YEARS PRIOR
     Route: 065
  2. REVELLEX [Suspect]
     Indication: RHEUMATOID ARTHRITIS
     Route: 042
     Dates: start: 20090629
  3. METHOTREXATE [Concomitant]
     Indication: RHEUMATOID ARTHRITIS
     Route: 065
  4. STEROIDS NOS [Suspect]
     Indication: PRODUCT USED FOR UNKNOWN INDICATION
     Route: 065
  5. TEN-BLOKA [Concomitant]
     Indication: HYPERTENSION
     Dosage: STARTED 3 YEARS PRIOR
     Route: 065

REACTIONS (2)
  - NOCARDIOSIS [None]
  - PNEUMONIA [None]
